FAERS Safety Report 9493696 (Version 12)
Quarter: 2015Q2

REPORT INFORMATION
  Report Type: Report from Study
  Country: CA (occurrence: CA)
  Receive Date: 20130902
  Receipt Date: 20150622
  Transmission Date: 20150821
  Serious: Yes (Other)
  Sender: FDA-Public Use
  Company Number: CA-ROCHE-1215165

PATIENT
  Age: 71 Year
  Sex: Female
  Weight: 97.3 kg

DRUGS (7)
  1. ACTEMRA [Suspect]
     Active Substance: TOCILIZUMAB
     Indication: RHEUMATOID ARTHRITIS
     Route: 042
     Dates: start: 20130213, end: 20150227
  2. BISOPROLOL [Concomitant]
     Active Substance: BISOPROLOL
  3. ACTEMRA [Suspect]
     Active Substance: TOCILIZUMAB
     Indication: RHEUMATOID ARTHRITIS
     Route: 058
     Dates: start: 20150402
  4. ARAVA [Concomitant]
     Active Substance: LEFLUNOMIDE
  5. ACTEMRA [Suspect]
     Active Substance: TOCILIZUMAB
     Route: 042
     Dates: start: 20140716
  6. CODEINE [Concomitant]
     Active Substance: CODEINE
  7. VALSARTAN. [Concomitant]
     Active Substance: VALSARTAN

REACTIONS (17)
  - Arthralgia [Not Recovered/Not Resolved]
  - Liver injury [Not Recovered/Not Resolved]
  - Chest pain [Recovered/Resolved]
  - Pain [Unknown]
  - Carpal tunnel syndrome [Not Recovered/Not Resolved]
  - Heart rate increased [Unknown]
  - Weight decreased [Unknown]
  - Fibromyalgia [Unknown]
  - Heart rate increased [Unknown]
  - Pain in extremity [Not Recovered/Not Resolved]
  - Blood pressure increased [Unknown]
  - Infusion related reaction [Unknown]
  - Rheumatoid arthritis [Unknown]
  - Blood pressure increased [Unknown]
  - Injection site pruritus [Unknown]
  - Weight increased [Unknown]
  - Joint range of motion decreased [Unknown]

NARRATIVE: CASE EVENT DATE: 20130411
